FAERS Safety Report 13693576 (Version 1)
Quarter: 2017Q2

REPORT INFORMATION
  Report Type: Spontaneous
  Country: US (occurrence: US)
  Receive Date: 20170627
  Receipt Date: 20170627
  Transmission Date: 20170830
  Serious: No
  Sender: FDA-Public Use
  Company Number: US-EMD SERONO-8163631

PATIENT
  Weight: 73 kg

DRUGS (1)
  1. BAVENCIO [Suspect]
     Active Substance: AVELUMAB
     Indication: GASTROINTESTINAL DISORDER

REACTIONS (6)
  - Emotional distress [Unknown]
  - Fatigue [Unknown]
  - Off label use [Unknown]
  - Dizziness [Unknown]
  - Feeling abnormal [Unknown]
  - Dehydration [Unknown]
